FAERS Safety Report 8353673-5 (Version None)
Quarter: 2012Q2

REPORT INFORMATION
  Report Type: 
  Country: None (occurrence: None)
  Receive Date: 20120511
  Receipt Date: 20120502
  Transmission Date: 20120825
  Serious: Yes (Hospitalization)
  Sender: FDA-Public Use
  Company Number: JP-VERTEX PHARMACEUTICALS INC.-AE-2012-006546

PATIENT
  Age: 48 Year
  Sex: Male

DRUGS (7)
  1. REBETOL [Concomitant]
     Indication: HEPATITIS C
     Route: 048
     Dates: start: 20120328, end: 20120410
  2. REBETOL [Concomitant]
     Route: 048
     Dates: start: 20120411, end: 20120417
  3. TALION [Concomitant]
     Route: 048
     Dates: start: 20120328, end: 20120424
  4. TELAVIC (TELAPREVIR) [Suspect]
     Indication: HEPATITIS C
     Route: 048
     Dates: start: 20120328, end: 20120424
  5. REBETOL [Concomitant]
     Route: 048
     Dates: start: 20120418, end: 20120430
  6. PEG-INTRON [Concomitant]
     Indication: HEPATITIS C
     Route: 051
     Dates: start: 20120328, end: 20120425
  7. RABEPRAZOLE SODIUM [Concomitant]
     Route: 048
     Dates: start: 20120501

REACTIONS (3)
  - DRUG ERUPTION [None]
  - BLOOD URIC ACID INCREASED [None]
  - HAEMOGLOBIN DECREASED [None]
